FAERS Safety Report 6570530-5 (Version None)
Quarter: 2010Q1

REPORT INFORMATION
  Report Type: 
  Country: None (occurrence: None)
  Receive Date: 20100204
  Receipt Date: 20100202
  Transmission Date: 20100710
  Serious: Yes (Hospitalization, Disabling)
  Sender: FDA-Public Use
  Company Number: US-MERCK-0912USA03752

PATIENT
  Age: 50 Year
  Sex: Female
  Weight: 51 kg

DRUGS (6)
  1. ISENTRESS [Suspect]
     Indication: HIV INFECTION
     Route: 048
     Dates: start: 20091202
  2. TRUVADA [Concomitant]
     Indication: HIV INFECTION
     Route: 048
     Dates: start: 20091202
  3. INTELENCE [Concomitant]
     Indication: HIV INFECTION
     Route: 048
     Dates: start: 20091202
  4. DILANTIN [Concomitant]
     Route: 048
  5. VICODIN [Concomitant]
     Indication: BACK PAIN
     Route: 048
  6. PROLACTIN [Concomitant]
     Indication: NAUSEA
     Route: 065

REACTIONS (3)
  - ATAXIA [None]
  - DIZZINESS [None]
  - GAIT DISTURBANCE [None]
